FAERS Safety Report 19179623 (Version 1)
Quarter: 2021Q2

REPORT INFORMATION
  Report Type: Spontaneous
  Country: US (occurrence: US)
  Receive Date: 20210423
  Receipt Date: 20210423
  Transmission Date: 20210717
  Serious: Yes (Other)
  Sender: FDA-Public Use
  Company Number: None

PATIENT
  Age: 73 Year
  Sex: Male

DRUGS (1)
  1. COSOPT [Suspect]
     Active Substance: DORZOLAMIDE HYDROCHLORIDE\TIMOLOL MALEATE
     Indication: OPEN ANGLE GLAUCOMA
     Route: 061
     Dates: start: 20190603, end: 20190604

REACTIONS (4)
  - Eye oedema [None]
  - Eye irritation [None]
  - Erythema [None]
  - Eye pruritus [None]

NARRATIVE: CASE EVENT DATE: 20190603
